FAERS Safety Report 10563304 (Version 1)
Quarter: 2014Q4

REPORT INFORMATION
  Report Type: Spontaneous
  Country: US (occurrence: None)
  Receive Date: 20141103
  Receipt Date: 20141103
  Transmission Date: 20150529
  Serious: Yes (Hospitalization)
  Sender: FDA-Public Use
  Company Number: None

PATIENT
  Age: 49 Year
  Sex: Male

DRUGS (11)
  1. ASPIRIN. [Concomitant]
     Active Substance: ASPIRIN
  2. CHLORHEXADINE [Concomitant]
  3. INSULIN [Concomitant]
     Active Substance: INSULIN NOS
  4. LANSOORAZOLE [Concomitant]
  5. FIPERACILLIN/TAZOBACTAM [Concomitant]
  6. ACETAMINOPHEN. [Concomitant]
     Active Substance: ACETAMINOPHEN
  7. FENTANYL. [Concomitant]
     Active Substance: FENTANYL
  8. HALOPERIDOL. [Concomitant]
     Active Substance: HALOPERIDOL
  9. ENOXAPARIN [Suspect]
     Active Substance: ENOXAPARIN
     Indication: PULMONARY EMBOLISM
     Route: 058
     Dates: start: 20140916
  10. AMPICILLIN AND SULBACTAM [Concomitant]
     Active Substance: AMPICILLIN SODIUM\SULBACTAM SODIUM
  11. LABETALOL [Concomitant]
     Active Substance: LABETALOL\LABETALOL HYDROCHLORIDE

REACTIONS (3)
  - Septic shock [None]
  - Respiratory failure [None]
  - Intra-abdominal haematoma [None]

NARRATIVE: CASE EVENT DATE: 20140916
